FAERS Safety Report 8494009-9 (Version None)
Quarter: 2012Q3

REPORT INFORMATION
  Report Type: 
  Country: None (occurrence: None)
  Receive Date: 20120709
  Receipt Date: 20120628
  Transmission Date: 20120928
  Serious: Yes (Hospitalization, Other)
  Sender: FDA-Public Use
  Company Number: US-BIOGENIDEC-2012BI019887

PATIENT
  Sex: Female
  Weight: 59 kg

DRUGS (14)
  1. MULTI-VITAMINS [Concomitant]
     Route: 048
  2. AMBIEN [Concomitant]
     Route: 048
  3. NEURONTIN [Concomitant]
     Route: 048
  4. HYDROCODONE BITARTRATE + ACETAMINOPHEN [Concomitant]
     Route: 048
  5. LISINOPRIL [Concomitant]
     Route: 048
  6. PREMPRO [Concomitant]
     Route: 048
  7. ADVAIR DISKUS 100/50 [Concomitant]
  8. AVONEX [Suspect]
     Indication: MULTIPLE SCLEROSIS
     Route: 030
     Dates: start: 20080801, end: 20090501
  9. AVONEX [Suspect]
     Route: 030
     Dates: start: 20110328
  10. CYMBALTA [Concomitant]
     Route: 048
  11. TOPROL-XL [Concomitant]
     Route: 048
  12. LASIX [Concomitant]
     Route: 048
  13. ASPIRIN [Concomitant]
     Route: 048
  14. AMOXICILLIN [Concomitant]
     Route: 048

REACTIONS (9)
  - AORTIC VALVE STENOSIS [None]
  - URINARY TRACT INFECTION [None]
  - HYPOTENSION [None]
  - ASPIRATION [None]
  - HYPERTENSION [None]
  - SEDATION [None]
  - SEPSIS [None]
  - VENTRICULAR TACHYCARDIA [None]
  - HYSTEROSALPINGO-OOPHORECTOMY [None]
